FAERS Safety Report 11953527 (Version 1)
Quarter: 2016Q1

REPORT INFORMATION
  Report Type: Report from Study
  Country: US (occurrence: US)
  Receive Date: 20160125
  Receipt Date: 20160125
  Transmission Date: 20160526
  Serious: No
  Sender: FDA-Public Use
  Company Number: US-ABBVIE-15K-163-1336469-00

PATIENT
  Age: 57 Year
  Sex: Female

DRUGS (1)
  1. HUMIRA [Suspect]
     Active Substance: ADALIMUMAB
     Indication: RHEUMATOID ARTHRITIS
     Route: 065
     Dates: start: 20141114

REACTIONS (4)
  - Rash pruritic [Not Recovered/Not Resolved]
  - Laceration [Not Recovered/Not Resolved]
  - Rash papular [Not Recovered/Not Resolved]
  - Skin warm [Not Recovered/Not Resolved]

NARRATIVE: CASE EVENT DATE: 20150116
